FAERS Safety Report 9213310 (Version 2)
Quarter: 2013Q4

REPORT INFORMATION
  Report Type: Spontaneous
  Country: US (occurrence: US)
  Receive Date: 20130405
  Receipt Date: 20131024
  Transmission Date: 20140711
  Serious: Yes (Other)
  Sender: FDA-Public Use
  Company Number: US-BAYER-2013-042457

PATIENT
  Age: 23 Year
  Sex: Female
  Weight: 57 kg

DRUGS (4)
  1. MIRENA [Suspect]
     Indication: CONTRACEPTION
     Dosage: 20 MCG/24HR, CONT
     Route: 015
     Dates: start: 20100120, end: 20111220
  2. DILANTIN [Concomitant]
     Indication: CONVULSION
     Dosage: UNK
     Dates: start: 2010
  3. COLPO-CLEANER JOD [Concomitant]
     Dosage: UNK
     Dates: start: 20081028
  4. COLPO-CLEANER JOD [Concomitant]
     Dosage: UNK
     Dates: start: 20090313

REACTIONS (8)
  - Uterine perforation [None]
  - Device dislocation [None]
  - Vaginal haemorrhage [None]
  - Injury [None]
  - Emotional distress [None]
  - Abdominal pain [None]
  - Scar [None]
  - Anxiety [None]
